FAERS Safety Report 9124299 (Version 1)
Quarter: 2013Q1

REPORT INFORMATION
  Report Type: Spontaneous
  Country: US (occurrence: US)
  Receive Date: 20130116
  Receipt Date: 20130116
  Transmission Date: 20140127
  Serious: No
  Sender: FDA-Public Use
  Company Number: US-PFIZER INC-2013017479

PATIENT
  Age: 51 Year
  Sex: Female
  Weight: 76.19 kg

DRUGS (4)
  1. LYRICA [Suspect]
     Indication: FIBROMYALGIA
     Dosage: 75 MG, 2X/DAY
     Dates: start: 2010
  2. LYRICA [Suspect]
     Indication: PAIN
  3. PROZAC [Concomitant]
     Indication: ANXIETY
     Dosage: 10 MG, AS NEEDED
  4. PROZAC [Concomitant]
     Indication: DEPRESSION

REACTIONS (2)
  - Local swelling [Not Recovered/Not Resolved]
  - Blood cholesterol increased [Unknown]
